FAERS Safety Report 15434188 (Version 11)
Quarter: 2019Q3

REPORT INFORMATION
  Report Type: Report from Study
  Country: TW (occurrence: TW)
  Receive Date: 20180927
  Receipt Date: 20190726
  Transmission Date: 20191004
  Serious: Yes (Death, Other)
  Sender: FDA-Public Use
  Company Number: PHHY2018TW098048

PATIENT
  Age: 63 Year
  Sex: Male
  Weight: 67 kg

DRUGS (23)
  1. SODICON [Concomitant]
     Indication: METASTASES TO LUNG
     Dosage: 1 OT, UNK
     Route: 048
     Dates: start: 20180704, end: 20180815
  2. FENTANYL. [Concomitant]
     Active Substance: FENTANYL
     Indication: ABDOMINAL PAIN
     Dosage: 2.1 OT, UNK
     Route: 061
     Dates: start: 20180606
  3. MEGESTROL ACETATE. [Concomitant]
     Active Substance: MEGESTROL ACETATE
     Indication: NUTRITIONAL SUPPLEMENTATION
     Dosage: 1 OT, UNK
     Route: 048
     Dates: start: 20180801, end: 20180815
  4. SENNOSIDES AANDB [Concomitant]
     Indication: PROPHYLAXIS
  5. SULTAMICILLIN [Concomitant]
     Active Substance: SULTAMICILLIN
     Indication: MYCOBACTERIAL INFECTION
     Dosage: 375 OT, UNK
     Route: 048
     Dates: start: 20180704, end: 20180714
  6. ACETAMINOPHEN. [Concomitant]
     Active Substance: ACETAMINOPHEN
     Indication: METASTASES TO LUNG
     Dosage: 500 OT, UNK
     Route: 048
     Dates: start: 20180717, end: 20180801
  7. CODEINE PHOSPHATE [Concomitant]
     Active Substance: CODEINE PHOSPHATE
     Indication: METASTASES TO LUNG
     Dosage: 30 OT, UNK
     Route: 048
     Dates: start: 20180801, end: 20180815
  8. AZITHROMYCIN ANHYDROUS. [Concomitant]
     Active Substance: AZITHROMYCIN ANHYDROUS
     Indication: PNEUMONITIS
     Dosage: 250 OT, UNK
     Route: 048
     Dates: start: 20180902, end: 20180902
  9. HYDROCORTISONE. [Concomitant]
     Active Substance: HYDROCORTISONE
     Indication: PROPHYLAXIS
     Dosage: 1 OT, UNK
     Route: 042
     Dates: start: 20180902
  10. FUROSEMIDE. [Concomitant]
     Active Substance: FUROSEMIDE
     Dosage: 1 OT, UNK
     Route: 042
     Dates: start: 20180903, end: 20180903
  11. AMBROXOL HCL [Concomitant]
     Active Substance: AMBROXOL HYDROCHLORIDE
     Indication: METASTASES TO LUNG
     Dosage: 30 OT, UNK
     Route: 048
     Dates: start: 20180711, end: 20180801
  12. TRICHLORMETHIAZIDE [Concomitant]
     Active Substance: TRICHLORMETHIAZIDE
     Indication: HYPERTENSION
     Dosage: 2 OT, UNK
     Route: 048
     Dates: start: 20180717, end: 20180801
  13. FUROSEMIDE. [Concomitant]
     Active Substance: FUROSEMIDE
     Indication: HYPERTENSION
     Dosage: 40 OT, UNK
     Route: 048
     Dates: start: 20180801, end: 20180815
  14. DEXAMETHASONE. [Concomitant]
     Active Substance: DEXAMETHASONE
     Indication: PROPHYLAXIS
     Dosage: 1 OT, UNK
     Route: 061
  15. VOTRIENT [Suspect]
     Active Substance: PAZOPANIB HYDROCHLORIDE
     Dosage: 800 OT, UNK
     Route: 048
     Dates: start: 20180628, end: 20180829
  16. MEGESTROL ACETATE. [Concomitant]
     Active Substance: MEGESTROL ACETATE
     Indication: DECREASED APPETITE
     Dosage: 8.5 OT, UNK
     Route: 048
     Dates: start: 20180604, end: 20180704
  17. ULTRACET [Concomitant]
     Active Substance: ACETAMINOPHEN\TRAMADOL HYDROCHLORIDE
     Indication: ABDOMINAL PAIN
     Dosage: 1 OT, UNK
     Route: 048
     Dates: start: 20180614
  18. VOTRIENT [Suspect]
     Active Substance: PAZOPANIB HYDROCHLORIDE
     Indication: RENAL CELL CARCINOMA
     Dosage: 600 OT, UNK
     Route: 048
     Dates: start: 20180614, end: 20180627
  19. POLYSTYRENE SULFONATE CALCIUM [Concomitant]
     Active Substance: CALCIUM POLYSTYRENE SULFONATE
     Indication: HYPERKALAEMIA
     Dosage: 5 OT, UNK
     Route: 048
     Dates: start: 20180903, end: 20180903
  20. MOSAPRIDE [Concomitant]
     Active Substance: MOSAPRIDE
     Indication: PROPHYLAXIS
     Dosage: 5 OT, UNK
     Route: 048
     Dates: start: 20180801, end: 20180815
  21. SENNOSIDES AANDB [Concomitant]
     Indication: ABDOMINAL PAIN
     Dosage: 20 OT, UNK
     Route: 048
     Dates: start: 20180606, end: 20180910
  22. ACETYLCYSTEINE. [Concomitant]
     Active Substance: ACETYLCYSTEINE
     Indication: METASTASES TO LUNG
     Dosage: 200 OT, UNK
     Route: 048
     Dates: start: 20180704, end: 20180711
  23. MOXIFLOXACIN. [Concomitant]
     Active Substance: MOXIFLOXACIN
     Indication: MYCOBACTERIAL INFECTION
     Dosage: 400 OT, UNK
     Route: 048
     Dates: start: 20180717, end: 20180726

REACTIONS (13)
  - Hyperkalaemia [Recovered/Resolved]
  - Aspartate aminotransferase increased [Recovered/Resolved]
  - Renal impairment [Unknown]
  - Blood creatinine increased [Recovered/Resolved]
  - Pneumonia cytomegaloviral [Fatal]
  - Benign prostatic hyperplasia [Recovered/Resolved]
  - Pleural effusion [Not Recovered/Not Resolved]
  - Hypoalbuminaemia [Unknown]
  - Chronic obstructive pulmonary disease [Not Recovered/Not Resolved]
  - Anuria [Not Recovered/Not Resolved]
  - Dyspnoea [Not Recovered/Not Resolved]
  - Asthenia [Not Recovered/Not Resolved]
  - Mycobacterial infection [Recovered/Resolved with Sequelae]

NARRATIVE: CASE EVENT DATE: 20180619
